FAERS Safety Report 10230869 (Version 1)
Quarter: 2014Q2

REPORT INFORMATION
  Report Type: Spontaneous
  Country: US (occurrence: US)
  Receive Date: 20140611
  Receipt Date: 20140611
  Transmission Date: 20141212
  Serious: No
  Sender: FDA-Public Use
  Company Number: US-BAYER-2014-079199

PATIENT
  Sex: Male

DRUGS (4)
  1. STAXYN (FDT/ODT) [Suspect]
     Indication: ERECTILE DYSFUNCTION
     Dosage: 10 MG, OW
     Route: 048
     Dates: start: 2014
  2. ALLEGRA [Concomitant]
  3. AZOPT [Concomitant]
  4. PRILOSEC [Concomitant]

REACTIONS (2)
  - Gingival pain [None]
  - Glossitis [None]
